FAERS Safety Report 18808895 (Version 2)
Quarter: 2021Q3

REPORT INFORMATION
  Report Type: Spontaneous
  Country: US (occurrence: US)
  Receive Date: 20210129
  Receipt Date: 20210806
  Transmission Date: 20211014
  Serious: Yes (Hospitalization)
  Sender: FDA-Public Use
  Company Number: US-ROCHE-2759606

PATIENT
  Age: 71 Year
  Sex: Female
  Weight: 68.5 kg

DRUGS (7)
  1. PEPCID [Concomitant]
     Active Substance: FAMOTIDINE
  2. GABAPENTIN. [Concomitant]
     Active Substance: GABAPENTIN
  3. TYLENOL [Concomitant]
     Active Substance: ACETAMINOPHEN
  4. DIFLUCAN [Concomitant]
     Active Substance: FLUCONAZOLE
  5. VALCYTE [Suspect]
     Active Substance: VALGANCICLOVIR HYDROCHLORIDE
     Indication: ANTIVIRAL PROPHYLAXIS
     Route: 048
     Dates: start: 20201104, end: 20210108
  6. ZOFRAN [Concomitant]
     Active Substance: ONDANSETRON HYDROCHLORIDE
  7. PF?06863135 [Suspect]
     Active Substance: PF-06863135
     Indication: PLASMA CELL MYELOMA
     Dosage: 10000UG/MG?MOST RECENT DOSE WAS 1000 MCG/MG
     Route: 041
     Dates: start: 20200610

REACTIONS (5)
  - Diarrhoea [Recovered/Resolved]
  - Nausea [Recovered/Resolved]
  - Urinary tract infection [Unknown]
  - Malaise [Recovered/Resolved]
  - Tachycardia [Recovered/Resolved]

NARRATIVE: CASE EVENT DATE: 20201231
